FAERS Safety Report 18468674 (Version 9)
Quarter: 2021Q2

REPORT INFORMATION
  Report Type: Report from Study
  Country: US (occurrence: US)
  Receive Date: 20201105
  Receipt Date: 20210412
  Transmission Date: 20210717
  Serious: No
  Sender: FDA-Public Use
  Company Number: NVSC2020US289622

PATIENT
  Sex: Female

DRUGS (4)
  1. COSENTYX [Suspect]
     Active Substance: SECUKINUMAB
     Dosage: 300 MG, Q28 DAYS
     Route: 058
  2. COSENTYX [Suspect]
     Active Substance: SECUKINUMAB
     Dosage: 300 MG
     Route: 058
  3. COSENTYX [Suspect]
     Active Substance: SECUKINUMAB
     Dosage: 300 MG, QMO (EVERY 28 DAYS)
     Route: 058
  4. COSENTYX [Suspect]
     Active Substance: SECUKINUMAB
     Indication: PSORIASIS
     Dosage: 300 MG, QW
     Route: 058
     Dates: start: 20201023

REACTIONS (12)
  - Stress [Unknown]
  - Nail bed bleeding [Unknown]
  - Drug ineffective [Not Recovered/Not Resolved]
  - Hypertension [Not Recovered/Not Resolved]
  - Head discomfort [Unknown]
  - Nasal congestion [Unknown]
  - Injection site pain [Recovered/Resolved]
  - Onychoclasis [Not Recovered/Not Resolved]
  - Migraine [Not Recovered/Not Resolved]
  - Epistaxis [Not Recovered/Not Resolved]
  - Nail psoriasis [Unknown]
  - Feeling abnormal [Not Recovered/Not Resolved]
